FAERS Safety Report 5860106-7 (Version None)
Quarter: 2008Q3

REPORT INFORMATION
  Report Type: 
  Country: None (occurrence: None)
  Receive Date: 20080827
  Receipt Date: 20080815
  Transmission Date: 20090109
  Serious: Yes (Other)
  Sender: FDA-Public Use
  Company Number: JP-PFIZER INC-2008069053

PATIENT

DRUGS (1)
  1. ZYVOX [Suspect]
     Dosage: DAILY DOSE:1200MG
     Route: 042

REACTIONS (1)
  - INTERSTITIAL LUNG DISEASE [None]
